FAERS Safety Report 12254329 (Version 1)
Quarter: 2016Q2

REPORT INFORMATION
  Report Type: Report from Study
  Country: US (occurrence: US)
  Receive Date: 20160411
  Receipt Date: 20160411
  Transmission Date: 20160815
  Serious: No
  Sender: FDA-Public Use
  Company Number: US-ABBVIE-16P-163-1564656-00

PATIENT
  Sex: Male

DRUGS (1)
  1. DUOPA [Suspect]
     Active Substance: CARBIDOPA\LEVODOPA
     Indication: PARKINSON^S DISEASE
     Route: 065
     Dates: start: 201512

REACTIONS (4)
  - Parkinson^s disease [Not Recovered/Not Resolved]
  - Device alarm issue [Unknown]
  - Drug effect decreased [Not Recovered/Not Resolved]
  - Device occlusion [Unknown]
